FAERS Safety Report 4883819-2 (Version None)
Quarter: 2006Q1

REPORT INFORMATION
  Report Type: 
  Country: None (occurrence: None)
  Receive Date: 20060113
  Receipt Date: 20060109
  Transmission Date: 20060701
  Serious: No
  Sender: FDA-Public Use
  Company Number: 2006-012

PATIENT
  Sex: Male

DRUGS (1)
  1. HIBICLENS [Suspect]
     Indication: LOCAL ANTIBACTERIAL THERAPY
     Dosage: TOPICAL
     Route: 061

REACTIONS (7)
  - BLISTER [None]
  - BURNING SENSATION [None]
  - CAUSTIC INJURY [None]
  - INCISION SITE COMPLICATION [None]
  - LYMPHATIC DISORDER [None]
  - RASH [None]
  - SKIN EXFOLIATION [None]
